FAERS Safety Report 21906370 (Version 1)
Quarter: 2023Q1

REPORT INFORMATION
  Report Type: Spontaneous
  Country: CN (occurrence: CN)
  Receive Date: 20230125
  Receipt Date: 20230125
  Transmission Date: 20230418
  Serious: Yes (Hospitalization, Other)
  Sender: FDA-Public Use
  Company Number: CN-NATCOUSA-2022-NATCOUSA-000115

PATIENT
  Age: 70 Year
  Sex: Female

DRUGS (4)
  1. LETROZOLE [Suspect]
     Active Substance: LETROZOLE
     Indication: Metastases to lung
     Dosage: (2.5MGQD)
     Dates: start: 202008
  2. PALBOCICLIB [Suspect]
     Active Substance: PALBOCICLIB
     Indication: Metastases to lung
     Dosage: (125MG QD, 3?WEEKS ON/1 WEEK OFF)
     Dates: start: 202008
  3. PALBOCICLIB [Suspect]
     Active Substance: PALBOCICLIB
     Indication: Metastases to pleura
     Dosage: (125MG QD, 3?WEEKS ON/1 WEEK OFF)
     Dates: start: 202008
  4. LETROZOLE [Suspect]
     Active Substance: LETROZOLE
     Indication: Metastases to pleura
     Dosage: (2.5MGQD)
     Dates: start: 202008

REACTIONS (9)
  - Delirium [Recovering/Resolving]
  - Delusion [Recovering/Resolving]
  - Tremor [Recovering/Resolving]
  - Neutropenia [Recovering/Resolving]
  - Therapy partial responder [Unknown]
  - Disease progression [Unknown]
  - Treatment failure [Unknown]
  - Malignant neoplasm of pleura metastatic [Unknown]
  - Lung cancer metastatic [Unknown]
